FAERS Safety Report 16203850 (Version 4)
Quarter: 2019Q2

REPORT INFORMATION
  Report Type: Spontaneous
  Country: US (occurrence: US)
  Receive Date: 20190416
  Receipt Date: 20190510
  Transmission Date: 20190711
  Serious: No
  Sender: FDA-Public Use
  Company Number: US-009507513-1904USA006585

PATIENT
  Age: 42 Year
  Sex: Male

DRUGS (3)
  1. JANUMET [Suspect]
     Active Substance: METFORMIN HYDROCHLORIDE\SITAGLIPTIN PHOSPHATE
     Indication: TYPE 2 DIABETES MELLITUS
     Dosage: 1 TABLET, QD(ALSO REPORTED AS 50/1000 MG, TWICE DAILY)
     Route: 048
     Dates: start: 20190403, end: 20190406
  2. SIMVASTIN [Concomitant]
     Active Substance: SIMVASTATIN
  3. ASPIRIN. [Concomitant]
     Active Substance: ASPIRIN

REACTIONS (2)
  - Nausea [Recovered/Resolved]
  - Expired product administered [Unknown]

NARRATIVE: CASE EVENT DATE: 20190403
